FAERS Safety Report 4448150-8 (Version None)
Quarter: 2004Q3

REPORT INFORMATION
  Report Type: 
  Country: None (occurrence: None)
  Receive Date: 20040913
  Receipt Date: 20040824
  Transmission Date: 20050211
  Serious: Yes (Other)
  Sender: FDA-Public Use
  Company Number: DE-ROCHE-378571

PATIENT
  Age: 56 Year
  Sex: Female
  Weight: 90 kg

DRUGS (11)
  1. XENICAL [Suspect]
     Indication: OBESITY
     Route: 048
     Dates: start: 20031008, end: 20031008
  2. XENICAL [Suspect]
     Route: 048
     Dates: start: 20031010, end: 20031010
  3. XENICAL [Suspect]
     Route: 048
     Dates: start: 20031014, end: 20031014
  4. OXIS TURBOHALER [Concomitant]
     Indication: ASTHMA
     Dosage: GIVEN 2-0-2.
  5. EUTHYROX [Concomitant]
     Indication: THYROID DISORDER
  6. PULMICORT [Concomitant]
     Indication: ASTHMA
     Dosage: GIVEN 2-0-2.
  7. ATROVENT INHALETTEN [Concomitant]
     Indication: ASTHMA
     Dosage: GIVEN 1-0-1.
  8. EUPHYLONG [Concomitant]
     Indication: ASTHMA
  9. OSPUR D3 [Concomitant]
     Indication: OSTEOPOROSIS PROPHYLAXIS
  10. OME-NERTON [Concomitant]
     Indication: GASTRITIS
     Dosage: GIVEN 1-0-1.
  11. LASIX [Concomitant]

REACTIONS (6)
  - ASTHENIA [None]
  - DEHYDRATION [None]
  - MICTURITION URGENCY [None]
  - MUSCLE CRAMP [None]
  - POLLAKIURIA [None]
  - URINE ANALYSIS ABNORMAL [None]
